FAERS Safety Report 7342102-6 (Version None)
Quarter: 2011Q1

REPORT INFORMATION
  Report Type: 
  Country: None (occurrence: None)
  Receive Date: 20110309
  Receipt Date: 20110225
  Transmission Date: 20110831
  Serious: Yes (Other)
  Sender: FDA-Public Use
  Company Number: US-RB-023015-11

PATIENT
  Age: 49 Year
  Sex: Male

DRUGS (2)
  1. SUBOXONE [Suspect]
     Indication: DRUG DEPENDENCE
     Route: 060
     Dates: start: 20090101, end: 20100101
  2. SUBOXONE [Suspect]
     Dosage: SELF TAPER (LAST DOSE WAS 4MG DAILY)
     Route: 060
     Dates: start: 20100101, end: 20110211

REACTIONS (6)
  - MALAISE [None]
  - SUICIDAL IDEATION [None]
  - INSOMNIA [None]
  - DEHYDRATION [None]
  - INTENTIONAL DRUG MISUSE [None]
  - ASTHENIA [None]
